FAERS Safety Report 10233480 (Version 1)
Quarter: 2014Q2

REPORT INFORMATION
  Report Type: Report from Study
  Country: US (occurrence: US)
  Receive Date: 20140612
  Receipt Date: 20140612
  Transmission Date: 20141212
  Serious: Yes (Other)
  Sender: FDA-Public Use
  Company Number: PHEH2014US011778

PATIENT
  Age: 23 Year
  Sex: Male

DRUGS (11)
  1. AFINITOR [Suspect]
     Indication: BRAIN NEOPLASM BENIGN
     Dosage: 2.5 MG, DAILY
     Route: 048
     Dates: start: 20121106, end: 20140109
  2. TIZANIDINE [Concomitant]
  3. CARAFATE [Concomitant]
  4. FAMOTIDINE [Concomitant]
  5. TRAMADOL [Concomitant]
  6. ONDANSETRON [Concomitant]
  7. ZONISAMIDE [Concomitant]
  8. DEXILANT [Concomitant]
  9. AMLODIPINE [Concomitant]
  10. VIMPAT [Concomitant]
  11. BANZEL [Concomitant]

REACTIONS (1)
  - Hiatus hernia [Unknown]
